FAERS Safety Report 6807334-1 (Version None)
Quarter: 2010Q2

REPORT INFORMATION
  Report Type: 
  Country: None (occurrence: None)
  Receive Date: 20100629
  Receipt Date: 20080828
  Transmission Date: 20101027
  Serious: No
  Sender: FDA-Public Use
  Company Number: US-PFIZER INC-2008072281

PATIENT
  Sex: Female
  Weight: 70.4 kg

DRUGS (6)
  1. TIKOSYN [Suspect]
     Indication: CARDIAC FLUTTER
     Dates: start: 20080819, end: 20080820
  2. METOPROLOL [Concomitant]
     Dates: start: 20080101
  3. WARFARIN SODIUM [Concomitant]
  4. LANOXIN [Concomitant]
  5. ALL OTHER THERAPEUTIC PRODUCTS [Concomitant]
  6. LORCET-HD [Concomitant]

REACTIONS (7)
  - BURNING SENSATION [None]
  - DRY MOUTH [None]
  - FEELING COLD [None]
  - HEADACHE [None]
  - HEART RATE INCREASED [None]
  - NAUSEA [None]
  - VOMITING [None]
